FAERS Safety Report 20612313 (Version 1)
Quarter: 2022Q1

REPORT INFORMATION
  Report Type: Spontaneous
  Country: US (occurrence: None)
  Receive Date: 20220318
  Receipt Date: 20220318
  Transmission Date: 20220423
  Serious: Yes (Life-Threatening, Disabling)
  Sender: FDA-Public Use
  Company Number: None

PATIENT
  Age: 48 Year
  Sex: Female
  Weight: 135.45 kg

DRUGS (8)
  1. ABILIFY [Suspect]
     Active Substance: ARIPIPRAZOLE
     Indication: Schizoaffective disorder bipolar type
     Dosage: OTHER QUANTITY : 1 TABLET(S);?FREQUENCY : AT BEDTIME;?
     Route: 048
     Dates: start: 20101001, end: 20211101
  2. LOSARTAN [Concomitant]
     Active Substance: LOSARTAN
  3. alodopene [Concomitant]
  4. INSULIN [Concomitant]
  5. FLONASE [Concomitant]
     Active Substance: FLUTICASONE PROPIONATE
  6. senjardy [Concomitant]
  7. HYDROCHLOROTHIAZIDE [Concomitant]
     Active Substance: HYDROCHLOROTHIAZIDE
  8. GEODON [Concomitant]
     Active Substance: ZIPRASIDONE HYDROCHLORIDE\ZIPRASIDONE MESYLATE

REACTIONS (8)
  - Weight increased [None]
  - Diabetes mellitus [None]
  - Hypohidrosis [None]
  - Impulsive behaviour [None]
  - Blood pressure abnormal [None]
  - Menstruation irregular [None]
  - Visual impairment [None]
  - Disability [None]

NARRATIVE: CASE EVENT DATE: 20210101
